FAERS Safety Report 5460766-9 (Version None)
Quarter: 2007Q3

REPORT INFORMATION
  Report Type: 
  Country: None (occurrence: None)
  Receive Date: 20070918
  Receipt Date: 20070905
  Transmission Date: 20080115
  Serious: Yes (Other)
  Sender: FDA-Public Use
  Company Number: B0486943A

PATIENT
  Sex: 0

DRUGS (8)
  1. MELPHALAN (FORMULATION UNKNOWN) (GENERIC) (MELPHALAN) [Suspect]
     Indication: NEUROBLASTOMA
     Dosage: 140 MG/M2
  2. CYCLOPHOSPHAMIDE [Concomitant]
  3. DOXORUBICIN HYDROCHLORIDE [Concomitant]
  4. CISPLATIN [Concomitant]
  5. ETOPOSIDE [Concomitant]
  6. GRANULOCYTE COL.STIM.FACT [Concomitant]
  7. STEM CELL TRANSPLANT [Concomitant]
  8. VINCRISTINE [Concomitant]

REACTIONS (2)
  - STEM CELL TRANSPLANT [None]
  - VENOOCCLUSIVE DISEASE [None]
